FAERS Safety Report 23892478 (Version 1)
Quarter: 2024Q2

REPORT INFORMATION
  Report Type: Spontaneous
  Country: GB (occurrence: GB)
  Receive Date: 20240524
  Receipt Date: 20240524
  Transmission Date: 20240717
  Serious: Yes (Other)
  Sender: FDA-Public Use
  Company Number: GB-MHRA-TPP6668464C9095532YC1714647907642

PATIENT
  Age: 31 Year
  Sex: Male
  Weight: 122 kg

DRUGS (6)
  1. NAPROXEN [Suspect]
     Active Substance: NAPROXEN
     Indication: Product used for unknown indication
     Dosage: 250 MILLIGRAM
     Route: 065
     Dates: start: 20240418
  2. Cetraben [Concomitant]
     Indication: Product used for unknown indication
     Dosage: UNK, AS NECESSARY (EMOLLIENT TO SOFTEN SKIN)
     Route: 065
     Dates: start: 20231106
  3. Dermola [Concomitant]
     Indication: Product used for unknown indication
     Dosage: UNK, AS NECESSARY (EMOLLIENT TO SOFTEN SKIN OR ...
     Route: 065
     Dates: start: 20231106
  4. FEXOFENADINE [Concomitant]
     Active Substance: FEXOFENADINE HYDROCHLORIDE
     Indication: Product used for unknown indication
     Dosage: TAKE ONE OR TWO , DAILY
     Route: 065
     Dates: start: 20231106
  5. MONTELUKAST [Concomitant]
     Active Substance: MONTELUKAST SODIUM
     Indication: Product used for unknown indication
     Dosage: 1 DOSAGE FORM, ONCE A DAY
     Route: 065
     Dates: start: 20231106
  6. SERTRALINE [Concomitant]
     Active Substance: SERTRALINE HYDROCHLORIDE
     Indication: Anxiety
     Dosage: 1 DOSAGE FORM, ONCE A DAY (ANTI-ANXIETY + ANTIDEPRESSANT)
     Route: 065
     Dates: start: 20231106

REACTIONS (2)
  - Wheezing [Recovered/Resolved]
  - Rash [Recovered/Resolved]
